FAERS Safety Report 5194321-5 (Version None)
Quarter: 2006Q4

REPORT INFORMATION
  Report Type: 
  Country: None (occurrence: None)
  Receive Date: 20061228
  Receipt Date: 20061130
  Transmission Date: 20070319
  Serious: Yes (Other)
  Sender: FDA-Public Use
  Company Number: FR-PFIZER INC-2006149061

PATIENT
  Sex: Male
  Weight: 78 kg

DRUGS (8)
  1. NEURONTIN [Suspect]
  2. LYRICA [Interacting]
     Indication: PAIN
     Route: 048
     Dates: start: 20061014, end: 20061023
  3. MORPHINE [Interacting]
     Indication: PAIN
     Dosage: DAILY DOSE:10MG
     Route: 048
  4. AMITRIPTYLINE HCL [Interacting]
     Indication: PAIN
     Dosage: DAILY DOSE:25MG
     Route: 048
  5. CORDARONE [Concomitant]
     Indication: ARRHYTHMIA
     Dosage: DAILY DOSE:200MG
     Route: 048
  6. ASPIRIN [Concomitant]
     Indication: CARDIOMYOPATHY
     Dosage: DAILY DOSE:160MG
     Route: 048
  7. NOOTROPYL [Concomitant]
     Indication: MEMORY IMPAIRMENT
     Dosage: DAILY DOSE:800MG
     Route: 048
  8. OMEPRAZOLE [Concomitant]
     Indication: ABDOMINAL PAIN UPPER
     Dosage: DAILY DOSE:20MG
     Route: 048

REACTIONS (5)
  - ASTHENIA [None]
  - DRUG INTERACTION [None]
  - FALL [None]
  - MALAISE [None]
  - VERTIGO [None]
